FAERS Safety Report 9494368 (Version 2)
Quarter: 2013Q4

REPORT INFORMATION
  Report Type: Spontaneous
  Country: JP (occurrence: JP)
  Receive Date: 20130903
  Receipt Date: 20131001
  Transmission Date: 20140711
  Serious: Yes (Hospitalization, Disabling)
  Sender: FDA-Public Use
  Company Number: JP-JNJFOC-20130816954

PATIENT
  Age: 82 Year
  Sex: Male
  Weight: 53 kg

DRUGS (8)
  1. XARELTO [Suspect]
     Indication: CEREBROVASCULAR ACCIDENT PROPHYLAXIS
     Route: 048
     Dates: start: 20120501
  2. XARELTO [Suspect]
     Indication: ATRIAL FIBRILLATION
     Route: 048
     Dates: start: 20120501
  3. DEPAKENE-R [Concomitant]
     Route: 048
  4. UBRETID [Concomitant]
     Route: 048
     Dates: start: 20071119
  5. HARNAL [Concomitant]
     Route: 048
     Dates: start: 20101216
  6. ARICEPT [Concomitant]
     Route: 048
     Dates: start: 20100329
  7. LUPRAC [Concomitant]
     Route: 048
     Dates: start: 20100329
  8. ALDACTONE A [Concomitant]
     Route: 048
     Dates: start: 20071119

REACTIONS (2)
  - Embolic stroke [Recovered/Resolved with Sequelae]
  - Drug ineffective [Unknown]
